FAERS Safety Report 25203002 (Version 1)
Quarter: 2025Q2

REPORT INFORMATION
  Report Type: Spontaneous
  Country: US (occurrence: None)
  Receive Date: 20250416
  Receipt Date: 20250416
  Transmission Date: 20250716
  Serious: Yes (Life-Threatening)
  Sender: FDA-CTU
  Company Number: None

PATIENT
  Age: 2 Day
  Sex: Male
  Weight: 2.44 kg

DRUGS (5)
  1. DEVICE [Suspect]
     Active Substance: DEVICE
  2. DEXTROSE [Suspect]
     Active Substance: DEXTROSE MONOHYDRATE
     Dates: start: 20250330, end: 20250330
  3. BD Alaris LVP 8100 - serial# 16562562 [Concomitant]
     Dates: start: 20250330
  4. BD Alaris LVP 8100 - serial# 16562562 [Concomitant]
     Dates: start: 20250330
  5. Baxer 10% Dextrose - Lol 464611 exp 04-2026 [Concomitant]
     Dates: start: 20250330

REACTIONS (4)
  - Infusion site swelling [None]
  - Use of accessory respiratory muscles [None]
  - Oxygen saturation decreased [None]
  - Blood glucose increased [None]

NARRATIVE: CASE EVENT DATE: 20250330
